FAERS Safety Report 8266387-7 (Version None)
Quarter: 2012Q2

REPORT INFORMATION
  Report Type: 
  Country: None (occurrence: None)
  Receive Date: 20120406
  Receipt Date: 20120326
  Transmission Date: 20120825
  Serious: Yes (Congenital Anomaly)
  Sender: FDA-Public Use
  Company Number: FR-ROCHE-755118

PATIENT
  Sex: Female

DRUGS (7)
  1. INNOHEP [Suspect]
     Indication: PRODUCT USED FOR UNKNOWN INDICATION
     Dosage: REPORTED AS 10000IU, ANTI-XA/0.5ML
     Dates: start: 20000101, end: 20090515
  2. CALCIUM CARBONATE [Suspect]
     Indication: PRODUCT USED FOR UNKNOWN INDICATION
  3. URSODIOL [Suspect]
     Indication: PRODUCT USED FOR UNKNOWN INDICATION
     Dosage: 200 MH 4 TIMES DAILY
  4. MYCOPHENOLATE MOFETIL (CELLCEPT) [Suspect]
     Indication: LIVER TRANSPLANT
     Dosage: THERAPY WAS STOPPED AT 6 WEEK OF AMENORRHEA
  5. ASPEGIC 250 [Suspect]
     Indication: PRODUCT USED FOR UNKNOWN INDICATION
     Dosage: STARTED BEFORE PREGNANCY.  FORM POWDER FOR ORAL SOLUTION.
  6. PROGRAF [Suspect]
     Indication: PRODUCT USED FOR UNKNOWN INDICATION
     Dosage: STARTED BEFORE PREGNANCY, FREQUENCY: DAILY
  7. PENTASA [Concomitant]
     Dosage: DPSE: 1 CI ONCE DAILY
     Dates: start: 20090223, end: 20090515

REACTIONS (1)
  - DYSMORPHISM [None]
